FAERS Safety Report 20581353 (Version 1)
Quarter: 2022Q1

REPORT INFORMATION
  Report Type: Spontaneous
  Country: CH (occurrence: CH)
  Receive Date: 20220311
  Receipt Date: 20220311
  Transmission Date: 20220423
  Serious: Yes (Other)
  Sender: FDA-Public Use
  Company Number: CH-AMGEN-CHESP2022038939

PATIENT
  Age: 22 Year
  Sex: Female

DRUGS (1)
  1. PROLIA [Suspect]
     Active Substance: DENOSUMAB
     Indication: Osteoporosis
     Dosage: UNK
     Route: 065

REACTIONS (8)
  - Pelvic fracture [Unknown]
  - Rib fracture [Unknown]
  - Hypophosphataemic osteomalacia [Recovered/Resolved]
  - Phosphaturic mesenchymal tumour [Recovered/Resolved]
  - Stress fracture [Unknown]
  - Injury [Unknown]
  - Bone density decreased [Recovered/Resolved]
  - Off label use [Unknown]

NARRATIVE: CASE EVENT DATE: 20160101
